FAERS Safety Report 8340673-4 (Version None)
Quarter: 2012Q1

REPORT INFORMATION
  Report Type: 
  Country: None (occurrence: None)
  Receive Date: 20120329
  Receipt Date: 20090827
  Transmission Date: 20120608
  Serious: Yes (Other)
  Sender: FDA-Public Use
  Company Number: PHEH2009US10065

PATIENT
  Age: 79 Year
  Sex: Male

DRUGS (3)
  1. ATENOLOL [Concomitant]
  2. EXELON [Suspect]
     Dosage: TRANSDERMAL
     Route: 062
  3. LIPITOR [Concomitant]

REACTIONS (3)
  - FALL [None]
  - WEIGHT DECREASED [None]
  - CONFUSIONAL STATE [None]
